FAERS Safety Report 5031435-4 (Version None)
Quarter: 2006Q2

REPORT INFORMATION
  Report Type: 
  Country: None (occurrence: None)
  Receive Date: 20060616
  Receipt Date: 20060605
  Transmission Date: 20061013
  Serious: Yes (Hospitalization)
  Sender: FDA-Public Use
  Company Number: 056-20785-06060202

PATIENT
  Age: 55 Year
  Sex: Male

DRUGS (2)
  1. THALIDOMIDE (THALIDOMIDE) (CAPSULES) [Suspect]
     Indication: MULTIPLE MYELOMA
     Dosage: SEE IMAGE, ORAL
     Route: 048
  2. DEXAMETHASONE [Concomitant]

REACTIONS (2)
  - HYPERKALAEMIA [None]
  - PARAPARESIS [None]
